APPROVED DRUG PRODUCT: CEFUROXIME SODIUM
Active Ingredient: CEFUROXIME SODIUM
Strength: EQ 1.5GM BASE/VIAL
Dosage Form/Route: INJECTABLE;INJECTION
Application: A064125 | Product #002 | TE Code: AP
Applicant: ACS DOBFAR SPA
Approved: May 30, 1997 | RLD: No | RS: No | Type: RX